FAERS Safety Report 7244213-2 (Version None)
Quarter: 2011Q1

REPORT INFORMATION
  Report Type: 
  Country: None (occurrence: None)
  Receive Date: 20110125
  Receipt Date: 20110120
  Transmission Date: 20110831
  Serious: Yes (Hospitalization)
  Sender: FDA-Public Use
  Company Number: US-SANOFI-AVENTIS-2010SA004917

PATIENT
  Age: 65 Year
  Sex: Male
  Weight: 63.5 kg

DRUGS (1)
  1. LANTUS [Suspect]
     Indication: TYPE 2 DIABETES MELLITUS
     Dosage: DOSE:45 UNIT(S)
     Route: 058

REACTIONS (2)
  - LUNG NEOPLASM [None]
  - POSTOPERATIVE THORACIC PROCEDURE COMPLICATION [None]
